FAERS Safety Report 17297152 (Version 14)
Quarter: 2020Q4

REPORT INFORMATION
  Report Type: Spontaneous
  Country: US (occurrence: US)
  Receive Date: 20200122
  Receipt Date: 20201221
  Transmission Date: 20210113
  Serious: Yes (Hospitalization, Other)
  Sender: FDA-Public Use
  Company Number: US-AKCEA THERAPEUTICS-2020IS001035

PATIENT
  Age: 73 Year
  Sex: Male

DRUGS (4)
  1. TEGSEDI [Suspect]
     Active Substance: INOTERSEN SODIUM
     Indication: HEREDITARY NEUROPATHIC AMYLOIDOSIS
     Route: 058
     Dates: start: 20190408
  2. COUMADIN [Concomitant]
     Active Substance: WARFARIN SODIUM
     Route: 065
  3. ISSD (INTEGRATED SYRINGE SAFETY DEVICE) [Suspect]
     Active Substance: DEVICE
  4. LASIX [Concomitant]
     Active Substance: FUROSEMIDE
     Route: 065

REACTIONS (30)
  - Pneumonia [Not Recovered/Not Resolved]
  - Peripheral swelling [Not Recovered/Not Resolved]
  - Cardiac failure congestive [Not Recovered/Not Resolved]
  - Cardiac disorder [Unknown]
  - Central venous catheterisation [Unknown]
  - Urinary sediment present [Unknown]
  - Heart rate increased [Not Recovered/Not Resolved]
  - Cardiac index abnormal [Unknown]
  - Glomerular filtration rate decreased [Not Recovered/Not Resolved]
  - Urinary casts [Not Recovered/Not Resolved]
  - Bacterial test positive [Not Recovered/Not Resolved]
  - Fluid retention [Not Recovered/Not Resolved]
  - Herpes zoster [Unknown]
  - Protein urine present [Unknown]
  - Urine abnormality [Unknown]
  - Hypotension [Not Recovered/Not Resolved]
  - Contusion [Unknown]
  - Blood creatinine increased [Not Recovered/Not Resolved]
  - Aspartate aminotransferase abnormal [Unknown]
  - Helicobacter infection [Not Recovered/Not Resolved]
  - Ejection fraction decreased [Unknown]
  - Platelet count decreased [Not Recovered/Not Resolved]
  - Fatigue [Not Recovered/Not Resolved]
  - Urine protein/creatinine ratio increased [Not Recovered/Not Resolved]
  - Blood bilirubin abnormal [Unknown]
  - Dyspnoea [Not Recovered/Not Resolved]
  - Hospitalisation [Unknown]
  - Atrial fibrillation [Unknown]
  - Crystal urine [Unknown]
  - Blood urine present [Unknown]

NARRATIVE: CASE EVENT DATE: 20200928
